FAERS Safety Report 9137046 (Version 1)
Quarter: 2013Q1

REPORT INFORMATION
  Report Type: Spontaneous
  Country: US (occurrence: US)
  Receive Date: 20130219
  Receipt Date: 20130219
  Transmission Date: 20140127
  Serious: Yes (Other)
  Sender: FDA-Public Use
  Company Number: US-BRISTOL-MYERS SQUIBB COMPANY-16488504

PATIENT
  Age: 55 Year
  Sex: Female

DRUGS (1)
  1. ORENCIA [Suspect]
     Indication: RHEUMATOID ARTHRITIS
     Dosage: ORENCIA INF ABOUT 1.5YEARS?LAST INF 15MAR12?INCREASED TO 750MG AT 12 INF
     Route: 042
     Dates: start: 20101102, end: 20120315

REACTIONS (1)
  - Breast cancer recurrent [Unknown]
